FAERS Safety Report 4698908-5 (Version None)
Quarter: 2005Q2

REPORT INFORMATION
  Report Type: 
  Country: None (occurrence: None)
  Receive Date: 20050622
  Receipt Date: 20050622
  Transmission Date: 20051028
  Serious: Yes (Life-Threatening, Hospitalization)
  Sender: FDA-Public Use
  Company Number: None

PATIENT
  Age: 63 Year
  Sex: Male
  Weight: 80.2 kg

DRUGS (1)
  1. LISINOPRIL [Suspect]

REACTIONS (2)
  - DIZZINESS [None]
  - MUSCLE SPASMS [None]
